FAERS Safety Report 4832469-2 (Version None)
Quarter: 2005Q4

REPORT INFORMATION
  Report Type: 
  Country: None (occurrence: None)
  Receive Date: 20051121
  Receipt Date: 20050519
  Transmission Date: 20060501
  Serious: Yes (Other)
  Sender: FDA-Public Use
  Company Number: US-BRISTOL-MYERS SQUIBB COMPANY-12974960

PATIENT
  Age: 68 Year
  Sex: Female
  Weight: 101 kg

DRUGS (2)
  1. ETOPOSIDE [Suspect]
     Indication: OVARIAN CANCER
     Dates: start: 20030901
  2. DOXIL [Suspect]
     Indication: OVARIAN CANCER
     Dates: start: 20041001, end: 20050201

REACTIONS (1)
  - LEUKAEMIA [None]
